FAERS Safety Report 4835683-5 (Version None)
Quarter: 2005Q4

REPORT INFORMATION
  Report Type: 
  Country: None (occurrence: None)
  Receive Date: 20051123
  Receipt Date: 20051121
  Transmission Date: 20060501
  Serious: Yes (Disabling, Other)
  Sender: FDA-Public Use
  Company Number: HR-AVENTIS-200520196GDDC

PATIENT
  Age: 32 Year
  Sex: Male

DRUGS (1)
  1. TELFAST [Suspect]
     Indication: RHINITIS ALLERGIC
     Route: 048
     Dates: start: 20050521, end: 20050523

REACTIONS (2)
  - DISORIENTATION [None]
  - SOMNOLENCE [None]
